FAERS Safety Report 24636144 (Version 2)
Quarter: 2025Q1

REPORT INFORMATION
  Report Type: Spontaneous
  Country: IT (occurrence: IT)
  Receive Date: 20241119
  Receipt Date: 20250218
  Transmission Date: 20250408
  Serious: Yes (Other)
  Sender: AUROBINDO
  Company Number: IT-AUROBINDO-AUR-APL-2024-055512

PATIENT
  Age: 69 Year
  Sex: Male

DRUGS (15)
  1. FUROSEMIDE [Suspect]
     Active Substance: FUROSEMIDE
     Indication: Chronic kidney disease
     Dosage: 250 MILLIGRAM, TWO TIMES A DAY
     Route: 065
     Dates: start: 2021
  2. FUROSEMIDE [Suspect]
     Active Substance: FUROSEMIDE
     Indication: Cardiac failure
  3. METOLAZONE [Suspect]
     Active Substance: METOLAZONE
     Indication: Chronic kidney disease
     Dosage: 5 MILLIGRAM, ONCE A DAY
     Route: 065
     Dates: start: 2021
  4. METOLAZONE [Suspect]
     Active Substance: METOLAZONE
     Indication: Cardiac failure
  5. SPIRONOLACTONE [Suspect]
     Active Substance: SPIRONOLACTONE
     Indication: Chronic kidney disease
     Dosage: 50 MILLIGRAM, ONCE A DAY
     Route: 065
  6. SPIRONOLACTONE [Suspect]
     Active Substance: SPIRONOLACTONE
     Indication: Cardiac failure
  7. BISOPROLOL [Concomitant]
     Active Substance: BISOPROLOL
     Indication: Chronic kidney disease
     Dosage: 2.5 MILLIGRAM, ONCE A DAY
     Route: 065
  8. BISOPROLOL [Concomitant]
     Active Substance: BISOPROLOL
     Indication: Cardiac failure
  9. SACUBITRIL [Concomitant]
     Active Substance: SACUBITRIL
     Indication: Cardiac failure
     Dosage: 24 MILLIGRAM, TWO TIMES A DAY
     Route: 065
  10. SACUBITRIL [Concomitant]
     Active Substance: SACUBITRIL
     Indication: Chronic kidney disease
  11. VALSARTAN [Concomitant]
     Active Substance: VALSARTAN
     Indication: Chronic kidney disease
     Dosage: 26 MILLIGRAM, TWO TIMES A DAY
     Route: 065
  12. VALSARTAN [Concomitant]
     Active Substance: VALSARTAN
     Indication: Cardiac failure
  13. ICODEXTRIN [Concomitant]
     Active Substance: ICODEXTRIN
     Indication: Peritoneal dialysis
     Route: 065
  14. DEXTROSE [Concomitant]
     Active Substance: DEXTROSE MONOHYDRATE
     Indication: Peritoneal dialysis
     Route: 065
  15. DAPAGLIFLOZIN [Concomitant]
     Active Substance: DAPAGLIFLOZIN
     Indication: Cardiac dysfunction
     Dosage: 10 MILLIGRAM, ONCE A DAY
     Route: 065

REACTIONS (1)
  - Drug ineffective [Unknown]
